FAERS Safety Report 5211612-X (Version None)
Quarter: 2007Q1

REPORT INFORMATION
  Report Type: 
  Country: None (occurrence: None)
  Receive Date: 20070116
  Receipt Date: 20070116
  Transmission Date: 20070707
  Serious: Yes (Life-Threatening, Hospitalization)
  Sender: FDA-Public Use
  Company Number: None

PATIENT
  Sex: Male

DRUGS (1)
  1. SEROQUEL [Suspect]
     Dosage: 100MG    PO
     Route: 048
     Dates: start: 20061026, end: 20061026

REACTIONS (4)
  - MUSCLE RIGIDITY [None]
  - PYREXIA [None]
  - RESTLESSNESS [None]
  - TREMOR [None]
